FAERS Safety Report 9355683 (Version 1)
Quarter: 2013Q2

REPORT INFORMATION
  Report Type: Spontaneous
  Country: US (occurrence: US)
  Receive Date: 20130619
  Receipt Date: 20130619
  Transmission Date: 20140414
  Serious: Yes (Hospitalization)
  Sender: FDA-Public Use
  Company Number: US-ELI_LILLY_AND_COMPANY-US201306003179

PATIENT
  Age: 85 Year
  Sex: Male

DRUGS (1)
  1. PROZAC [Suspect]
     Dosage: 20 MG, UNKNOWN
     Route: 048
     Dates: start: 1998

REACTIONS (4)
  - Infection [Unknown]
  - Swelling [Unknown]
  - Dehydration [Unknown]
  - Diet refusal [Unknown]
